FAERS Safety Report 4712271-2 (Version None)
Quarter: 2005Q3

REPORT INFORMATION
  Report Type: 
  Country: None (occurrence: None)
  Receive Date: 20050712
  Receipt Date: 20050707
  Transmission Date: 20060218
  Serious: Yes (Hospitalization)
  Sender: FDA-Public Use
  Company Number: US-GLAXOSMITHKLINE-B0387245A

PATIENT
  Age: 67 Year
  Sex: Female

DRUGS (2)
  1. SALMETEROL [Suspect]
     Indication: RESPIRATORY DISORDER
     Dosage: 25UG TWICE PER DAY
     Route: 055
     Dates: start: 20050501, end: 20050520
  2. DICLOFENAC SODIUM [Concomitant]
     Dosage: 50MG THREE TIMES PER DAY
     Route: 048
     Dates: start: 20050501, end: 20050501

REACTIONS (2)
  - ATRIAL FIBRILLATION [None]
  - DILATATION VENTRICULAR [None]
